FAERS Safety Report 17249566 (Version 3)
Quarter: 2020Q3

REPORT INFORMATION
  Report Type: Report from Study
  Country: None (occurrence: US)
  Receive Date: 20200108
  Receipt Date: 20200901
  Transmission Date: 20201102
  Serious: Yes (Hospitalization, Other)
  Sender: FDA-Public Use
  Company Number: US-ABBVIE-18K-163-2468741-00

PATIENT
  Age: 37 Year
  Sex: Female
  Weight: 113.5 kg

DRUGS (10)
  1. HUMIRA [Suspect]
     Active Substance: ADALIMUMAB
     Indication: HIDRADENITIS
     Route: 058
  2. HUMIRA [Suspect]
     Active Substance: ADALIMUMAB
     Indication: COLITIS ULCERATIVE
     Dosage: CITRATE FREE
     Route: 058
  3. HUMIRA [Suspect]
     Active Substance: ADALIMUMAB
     Indication: HIDRADENITIS
  4. VITAMIN B12 [Concomitant]
     Active Substance: CYANOCOBALAMIN
     Indication: VITAMIN B12 DEFICIENCY
  5. VITAMIN D [Concomitant]
     Active Substance: VITAMIN D NOS
     Indication: VITAMIN D DEFICIENCY
  6. HUMIRA [Suspect]
     Active Substance: ADALIMUMAB
     Indication: COLITIS ULCERATIVE
     Route: 058
     Dates: start: 20180525
  7. UCERIS [Concomitant]
     Active Substance: BUDESONIDE
     Indication: CROHN^S DISEASE
  8. CLINDAMYCIN. [Concomitant]
     Active Substance: CLINDAMYCIN
     Indication: HIDRADENITIS
  9. HUMIRA [Suspect]
     Active Substance: ADALIMUMAB
     Indication: CROHN^S DISEASE
  10. HUMIRA [Suspect]
     Active Substance: ADALIMUMAB
     Indication: CROHN^S DISEASE

REACTIONS (14)
  - Colitis [Recovered/Resolved]
  - Abdominal pain [Recovered/Resolved]
  - Proctalgia [Unknown]
  - Hidradenitis [Recovered/Resolved]
  - Rectal spasm [Recovered/Resolved]
  - Pelvic floor muscle weakness [Recovered/Resolved]
  - Hidradenitis [Recovered/Resolved]
  - Bladder prolapse [Recovered/Resolved]
  - Hidradenitis [Recovered/Resolved]
  - Proctitis [Recovered/Resolved]
  - Drug ineffective [Recovered/Resolved]
  - Hidradenitis [Not Recovered/Not Resolved]
  - Arthralgia [Recovering/Resolving]
  - Enteritis [Recovered/Resolved]

NARRATIVE: CASE EVENT DATE: 201808
